FAERS Safety Report 4449579-4 (Version None)
Quarter: 2004Q3

REPORT INFORMATION
  Report Type: 
  Country: None (occurrence: None)
  Receive Date: 20040913
  Receipt Date: 20040824
  Transmission Date: 20050211
  Serious: Yes (Life-Threatening, Hospitalization)
  Sender: FDA-Public Use
  Company Number: 2004-120013-NL

PATIENT
  Age: 55 Year
  Sex: Female

DRUGS (2)
  1. REMERON SOLTAB [Suspect]
     Dosage: 30 MG
     Dates: start: 20400119, end: 20040204
  2. ALPRAZOLAM [Concomitant]

REACTIONS (1)
  - SUICIDE ATTEMPT [None]
